FAERS Safety Report 20550177 (Version 1)
Quarter: 2022Q1

REPORT INFORMATION
  Report Type: Spontaneous
  Country: US (occurrence: US)
  Receive Date: 20220304
  Receipt Date: 20220304
  Transmission Date: 20220423
  Serious: No
  Sender: FDA-Public Use
  Company Number: US-PURDUE PHARMA-USA-2021-0289409

PATIENT
  Sex: Female

DRUGS (2)
  1. BUPRENORPHINE [Suspect]
     Active Substance: BUPRENORPHINE
     Indication: Back pain
     Dosage: 5 MCG/HR, WEEKLY
     Route: 062
     Dates: start: 202107
  2. BUPRENORPHINE [Suspect]
     Active Substance: BUPRENORPHINE
     Dosage: 10 MCG/HR, WEEKLY
     Route: 062
     Dates: start: 202107

REACTIONS (4)
  - Application site pruritus [Unknown]
  - Application site erythema [Unknown]
  - Application site papules [Unknown]
  - Drug ineffective [Unknown]
